FAERS Safety Report 7945877-8 (Version None)
Quarter: 2011Q4

REPORT INFORMATION
  Report Type: 
  Country: None (occurrence: None)
  Receive Date: 20111129
  Receipt Date: 20111117
  Transmission Date: 20120403
  Serious: Yes (Hospitalization)
  Sender: FDA-Public Use
  Company Number: FR-ROCHE-1014463

PATIENT
  Age: 51 Year
  Sex: Female

DRUGS (8)
  1. MABTHERA [Suspect]
     Route: 042
     Dates: start: 20110208
  2. LANSOPRAZOLE [Concomitant]
  3. MABTHERA [Suspect]
     Route: 042
     Dates: start: 20101229
  4. MABTHERA [Suspect]
     Indication: RHEUMATOID ARTHRITIS
     Route: 042
     Dates: start: 20101117
  5. LEVOTHYROXINE SODIUM [Concomitant]
  6. PLAQUENIL [Concomitant]
  7. INDOMETHACIN [Concomitant]
  8. ESTREVA [Concomitant]

REACTIONS (1)
  - LUNG DISORDER [None]
